FAERS Safety Report 6722091-5 (Version None)
Quarter: 2010Q2

REPORT INFORMATION
  Report Type: 
  Country: None (occurrence: None)
  Receive Date: 20100512
  Receipt Date: 20100507
  Transmission Date: 20101027
  Serious: Yes (Death, Other)
  Sender: FDA-Public Use
  Company Number: TR-ELI_LILLY_AND_COMPANY-TR201003008615

PATIENT
  Age: 76 Year
  Sex: Female

DRUGS (3)
  1. HUMULIN 70/30 [Suspect]
     Indication: DIABETES MELLITUS
     Dosage: 10 IU, EACH MORNING
     Route: 058
     Dates: start: 20000101
  2. HUMULIN 70/30 [Suspect]
     Dosage: 14 IU, EACH EVENING
     Route: 058
     Dates: start: 20000101
  3. NSAID'S [Concomitant]

REACTIONS (1)
  - CARDIAC FAILURE [None]
